FAERS Safety Report 10994293 (Version 2)
Quarter: 2015Q2

REPORT INFORMATION
  Report Type: Spontaneous
  Country: JP (occurrence: JP)
  Receive Date: 20150407
  Receipt Date: 20150501
  Transmission Date: 20150821
  Serious: Yes (Other)
  Sender: FDA-Public Use
  Company Number: JP-ASTELLAS-2014JP014271AA

PATIENT
  Age: 84 Year
  Sex: Male
  Weight: 53 kg

DRUGS (15)
  1. URSO [Concomitant]
     Active Substance: URSODIOL
     Indication: HEPATIC CIRRHOSIS
     Route: 048
  2. ADALAT [Concomitant]
     Active Substance: NIFEDIPINE
     Indication: HYPERTENSION
     Route: 048
  3. KN SOL. 3B [Concomitant]
     Indication: FLUID REPLACEMENT
     Route: 042
     Dates: start: 20120905, end: 20120905
  4. DORMICUM [Suspect]
     Active Substance: MIDAZOLAM\MIDAZOLAM HYDROCHLORIDE
     Indication: SEDATION
     Dosage: UNK UNK, UNKNOWN FREQ., DILUTED 10 TIMES WITH PHYSIOLOGICAL SALINE 18 ML
     Route: 042
     Dates: start: 20120905, end: 20120905
  5. VESICARE [Suspect]
     Active Substance: SOLIFENACIN SUCCINATE
     Indication: BENIGN PROSTATIC HYPERPLASIA
     Route: 048
  6. URSO [Concomitant]
     Active Substance: URSODIOL
     Indication: HEPATITIS C
  7. LIVACT                             /00847901/ [Concomitant]
     Active Substance: ISOLEUCINE\LEUCINE\VALINE
     Indication: HEPATITIS C
  8. GAMOFA D [Concomitant]
     Active Substance: FAMOTIDINE
     Indication: GASTRIC ULCER
     Route: 048
  9. GLYCYRON                           /00466401/ [Concomitant]
     Indication: HEPATIC CIRRHOSIS
     Route: 048
  10. HARNAL [Concomitant]
     Active Substance: TAMSULOSIN HYDROCHLORIDE
     Indication: BENIGN PROSTATIC HYPERPLASIA
     Dosage: 0.2 MG, ONCE DAILY
     Route: 048
  11. SOSEGON                            /00052101/ [Suspect]
     Active Substance: PENTAZOCINE
     Indication: ANALGESIC THERAPY
     Route: 042
     Dates: start: 20120905, end: 20120905
  12. ATARAX-P                           /00058402/ [Concomitant]
     Active Substance: HYDROXYZINE HYDROCHLORIDE
     Indication: ANALGESIC THERAPY
     Route: 042
     Dates: start: 20120905, end: 20120905
  13. ATARAX-P                           /00058402/ [Concomitant]
     Active Substance: HYDROXYZINE HYDROCHLORIDE
     Indication: SEDATION
  14. GLYCYRON                           /00466401/ [Concomitant]
     Indication: HEPATITIS C
  15. LIVACT                             /00847901/ [Concomitant]
     Active Substance: ISOLEUCINE\LEUCINE\VALINE
     Indication: HEPATIC CIRRHOSIS
     Dosage: 4.15 G, THRICE DAILY
     Route: 048

REACTIONS (4)
  - Off label use [Unknown]
  - Respiratory depression [Recovered/Resolved]
  - Somnolence [Recovered/Resolved]
  - Off label use [Unknown]

NARRATIVE: CASE EVENT DATE: 20120905
